FAERS Safety Report 8249657-8 (Version None)
Quarter: 2012Q2

REPORT INFORMATION
  Report Type: 
  Country: None (occurrence: None)
  Receive Date: 20120402
  Receipt Date: 20120323
  Transmission Date: 20120825
  Serious: Yes (Hospitalization, Other)
  Sender: FDA-Public Use
  Company Number: US-BAYER-2011-037861

PATIENT
  Age: 44 Year
  Sex: Female
  Weight: 91.61 kg

DRUGS (8)
  1. YASMIN [Suspect]
     Indication: CONTRACEPTION
     Dosage: UNK
     Dates: start: 20040101, end: 20090101
  2. METFORMIN HCL [Concomitant]
     Indication: DIABETES MELLITUS
     Dosage: UNK
     Dates: start: 20080924, end: 20090801
  3. RAMIPRIL [Concomitant]
     Indication: BLOOD PRESSURE ABNORMAL
     Dosage: UNK
     Dates: start: 20090404, end: 20091121
  4. VITAMIN D [Concomitant]
     Dosage: UNK
     Dates: start: 20090511
  5. NOVOLOG [Concomitant]
     Indication: DIABETES MELLITUS
     Dosage: UNK
     Dates: start: 20090101
  6. GLYBURIDE [Concomitant]
     Indication: DIABETES MELLITUS
     Dosage: UNK
     Dates: start: 20060101
  7. SYNTHROID [Concomitant]
     Indication: THYROID DISORDER
     Dosage: UNK
     Dates: start: 20090224, end: 20090430
  8. ALTACE [Concomitant]
     Indication: BLOOD PRESSURE ABNORMAL
     Dosage: UNK
     Dates: start: 20080225, end: 20090125

REACTIONS (9)
  - ORGAN FAILURE [None]
  - CHOLECYSTECTOMY [None]
  - GENERAL PHYSICAL HEALTH DETERIORATION [None]
  - INTERNAL INJURY [None]
  - ANXIETY [None]
  - ANHEDONIA [None]
  - PAIN [None]
  - CHOLELITHIASIS [None]
  - EMOTIONAL DISTRESS [None]
